FAERS Safety Report 6287243-X (Version None)
Quarter: 2009Q3

REPORT INFORMATION
  Report Type: 
  Country: None (occurrence: None)
  Receive Date: 20090728
  Receipt Date: 20090715
  Transmission Date: 20100115
  Serious: Yes (Other)
  Sender: FDA-Public Use
  Company Number: PHHY2009ZA25144

PATIENT
  Sex: Female

DRUGS (1)
  1. EXFORGE [Suspect]
     Dosage: 160/10 MG
     Route: 048
     Dates: start: 20090619

REACTIONS (2)
  - INFLUENZA LIKE ILLNESS [None]
  - OROPHARYNGEAL PAIN [None]
